FAERS Safety Report 23564576 (Version 1)
Quarter: 2024Q1

REPORT INFORMATION
  Report Type: Report from Study
  Country: FR (occurrence: FR)
  Receive Date: 20240226
  Receipt Date: 20240226
  Transmission Date: 20240410
  Serious: Yes (Hospitalization, Other)
  Sender: FDA-Public Use
  Company Number: FR-ASTELLAS-2024US002601

PATIENT
  Age: 74 Year
  Sex: Male
  Weight: 100 kg

DRUGS (3)
  1. ENFORTUMAB VEDOTIN [Suspect]
     Active Substance: ENFORTUMAB VEDOTIN
     Indication: Transitional cell carcinoma
     Dosage: 1.25 MG/KG, CYCLIC (30 MG, C1D1)
     Route: 065
     Dates: start: 202312
  2. ENFORTUMAB VEDOTIN [Suspect]
     Active Substance: ENFORTUMAB VEDOTIN
     Dosage: 1.25 MG/KG, CYCLIC (C1D8)
     Route: 065
     Dates: start: 202312
  3. ENFORTUMAB VEDOTIN [Suspect]
     Active Substance: ENFORTUMAB VEDOTIN
     Dosage: 1.20 MG/KG, CYCLIC (RECEIVED 120MG INSTEAD OF 125MG)
     Route: 065
     Dates: end: 20240103

REACTIONS (5)
  - Diabetic ketoacidosis [Recovered/Resolved]
  - Rash maculo-papular [Unknown]
  - Urosepsis [Unknown]
  - Prostatitis [Unknown]
  - Incorrect dose administered [Unknown]

NARRATIVE: CASE EVENT DATE: 20231201
